FAERS Safety Report 8181234-X (Version None)
Quarter: 2012Q1

REPORT INFORMATION
  Report Type: 
  Country: None (occurrence: None)
  Receive Date: 20120302
  Receipt Date: 20120229
  Transmission Date: 20120608
  Serious: Yes (Death, Other)
  Sender: FDA-Public Use
  Company Number: JP-PFIZER INC-2012053098

PATIENT
  Age: 16 Year
  Sex: Female
  Weight: 47 kg

DRUGS (1)
  1. GABAPENTIN [Suspect]
     Indication: EPILEPSY
     Route: 048

REACTIONS (3)
  - PULMONARY ALVEOLAR HAEMORRHAGE [None]
  - SPLENOMEGALY [None]
  - APLASTIC ANAEMIA [None]
